FAERS Safety Report 9574283 (Version 2)
Quarter: 2013Q4

REPORT INFORMATION
  Report Type: Spontaneous
  Country: JP (occurrence: JP)
  Receive Date: 20131001
  Receipt Date: 20131011
  Transmission Date: 20140711
  Serious: Yes (Hospitalization)
  Sender: FDA-Public Use
  Company Number: JP-AMGEN-JPNSP2013067789

PATIENT
  Age: 61 Year
  Sex: Male
  Weight: 60 kg

DRUGS (4)
  1. VECTIBIX [Suspect]
     Indication: COLON CANCER
     Dosage: 350 MG, Q2WK
     Route: 041
     Dates: start: 20121119, end: 20130121
  2. OXALIPLATIN [Concomitant]
     Indication: COLON CANCER
     Dosage: 125 MG, Q2WK
     Route: 041
     Dates: start: 20121119, end: 20130121
  3. CALCIUM LEVOFOLINATE [Concomitant]
     Indication: COLON CANCER
     Dosage: 160 MG, UNK
     Route: 041
     Dates: start: 20121119, end: 20130121
  4. 5 FU [Concomitant]
     Indication: COLON CANCER
     Dosage: 1600 MG, UNK
     Route: 041
     Dates: start: 20121119, end: 20130121

REACTIONS (2)
  - Dermatitis acneiform [Recovering/Resolving]
  - Paronychia [Recovering/Resolving]
